FAERS Safety Report 20113146 (Version 2)
Quarter: 2021Q4

REPORT INFORMATION
  Report Type: Spontaneous
  Country: US (occurrence: US)
  Receive Date: 20211125
  Receipt Date: 20211204
  Transmission Date: 20220303
  Serious: Yes (Other)
  Sender: FDA-Public Use
  Company Number: US-drreddys-LIT/USA/21/0144041

PATIENT
  Age: 56 Year
  Sex: Female

DRUGS (2)
  1. DECITABINE [Suspect]
     Active Substance: DECITABINE
     Indication: Acute myeloid leukaemia
  2. RUXOLITINIB [Concomitant]
     Active Substance: RUXOLITINIB
     Indication: Acute myeloid leukaemia refractory

REACTIONS (1)
  - Drug ineffective [Unknown]
